FAERS Safety Report 6646773-9 (Version None)
Quarter: 2010Q1

REPORT INFORMATION
  Report Type: 
  Country: None (occurrence: None)
  Receive Date: 20100323
  Receipt Date: 20100315
  Transmission Date: 20100710
  Serious: Yes (Other)
  Sender: FDA-Public Use
  Company Number: US-JNJCH-2010006745

PATIENT
  Age: 54 Year
  Sex: Female
  Weight: 61.2 kg

DRUGS (3)
  1. DRAMAMINE [Suspect]
     Indication: DIZZINESS
     Dosage: TEXT:2 TABLETS ONCE
     Route: 048
     Dates: start: 20100315, end: 20100315
  2. DIOVAN HCT [Concomitant]
     Indication: HYPERTENSION
     Dosage: TEXT:ONE 160/25MG 1X A DAY
     Route: 065
  3. ANTIHYPERTENSIVES [Concomitant]
     Indication: HYPERTENSION
     Dosage: TEXT:UNKNOWN
     Route: 065

REACTIONS (2)
  - AMNESIA [None]
  - DIZZINESS POSTURAL [None]
